FAERS Safety Report 10215873 (Version 1)
Quarter: 2014Q2

REPORT INFORMATION
  Report Type: Spontaneous
  Country: US (occurrence: US)
  Receive Date: 20140604
  Receipt Date: 20140604
  Transmission Date: 20141212
  Serious: Yes (Other)
  Sender: FDA-Public Use
  Company Number: US-ELI_LILLY_AND_COMPANY-US201405008028

PATIENT
  Sex: Male

DRUGS (5)
  1. HUMULIN NPH [Suspect]
     Indication: DIABETES MELLITUS
     Dosage: 48 U, EACH MORNING
     Route: 065
  2. HUMULIN NPH [Suspect]
     Dosage: 12 U, EACH EVENING
     Route: 065
  3. HUMULIN NPH [Suspect]
     Dosage: 48 U, EACH MORNING
     Route: 065
  4. HUMULIN NPH [Suspect]
     Dosage: 12 U, EACH EVENING
     Route: 065
  5. INSULIN [Concomitant]
     Dosage: UNK, QD

REACTIONS (1)
  - Eye haemorrhage [Unknown]
